FAERS Safety Report 5632825-9 (Version None)
Quarter: 2008Q1

REPORT INFORMATION
  Report Type: 
  Country: None (occurrence: None)
  Receive Date: 20080221
  Receipt Date: 20080211
  Transmission Date: 20080703
  Serious: No
  Sender: FDA-Public Use
  Company Number: FR-JNJFOC-20080105145

PATIENT
  Age: 11 Year
  Sex: Female

DRUGS (6)
  1. REMICADE [Suspect]
     Route: 042
  2. REMICADE [Suspect]
     Route: 042
  3. REMICADE [Suspect]
     Indication: CROHN'S DISEASE
     Route: 042
  4. POLARAMINE [Concomitant]
     Indication: PREMEDICATION
  5. CORTICOIDS [Concomitant]
     Indication: PREMEDICATION
  6. METHYLPREDNISOLONE [Concomitant]
     Indication: PREMEDICATION

REACTIONS (2)
  - ANGIOEDEMA [None]
  - INFUSION RELATED REACTION [None]
